FAERS Safety Report 4972066-1 (Version None)
Quarter: 2006Q2

REPORT INFORMATION
  Report Type: 
  Country: None (occurrence: None)
  Receive Date: 20060413
  Receipt Date: 20060309
  Transmission Date: 20061013
  Serious: Yes (Death)
  Sender: FDA-Public Use
  Company Number: DE-GILEAD-2006-0009300

PATIENT
  Sex: Male

DRUGS (3)
  1. TRUVADA [Suspect]
     Indication: HIV INFECTION
     Route: 048
     Dates: start: 20050701, end: 20060101
  2. VIRAMUNE [Concomitant]
  3. SUSTIVA [Concomitant]
     Route: 048

REACTIONS (4)
  - DRUG RESISTANCE [None]
  - LYMPHOMA [None]
  - PNEUMONIA [None]
  - VIRAL LOAD INCREASED [None]
